FAERS Safety Report 16817279 (Version 13)
Quarter: 2020Q3

REPORT INFORMATION
  Report Type: Spontaneous
  Country: US (occurrence: US)
  Receive Date: 20190917
  Receipt Date: 20200902
  Transmission Date: 20201102
  Serious: Yes (Hospitalization, Other)
  Sender: FDA-Public Use
  Company Number: US-CATALYST PHARMACEUTICALS, INC-2019CAT00390

PATIENT
  Age: 40 Year
  Sex: Female
  Weight: 68.03 kg

DRUGS (44)
  1. CELLCEPT [Concomitant]
     Active Substance: MYCOPHENOLATE MOFETIL\MYCOPHENOLATE MOFETIL HYDROCHLORIDE
     Dosage: 1000 MG, 2X/DAY
     Route: 048
  2. CUTAQUIG [Concomitant]
     Active Substance: HUMAN IMMUNOGLOBULIN G
     Dosage: 120 ML, 1X/WEEK
     Route: 058
  3. OMEPRAZOLE. [Concomitant]
     Active Substance: OMEPRAZOLE
     Dosage: 40 MG, 2X/DAY
     Route: 048
  4. TRAZODONE [Concomitant]
     Active Substance: TRAZODONE HYDROCHLORIDE
     Dosage: 50 MG, 2X/DAY
     Route: 048
  5. VITAMIN D3 (ERGOCALCIFEROL) [Concomitant]
     Dosage: 50000 U, 2X/WEEK
  6. ADDERALL XR [Concomitant]
     Active Substance: AMPHETAMINE ASPARTATE\AMPHETAMINE SULFATE\DEXTROAMPHETAMINE SACCHARATE\DEXTROAMPHETAMINE SULFATE
     Dosage: 20 MG, 1X/DAY
  7. LORAZEPAM. [Concomitant]
     Active Substance: LORAZEPAM
     Dosage: 1 MG, 3X/DAY
  8. COMBIVENT RESPIMAT [Concomitant]
     Active Substance: ALBUTEROL SULFATE\IPRATROPIUM BROMIDE
     Dosage: 1 DOSAGE UNITS, 2X/DAY
     Route: 055
  9. FOLIC ACID. [Concomitant]
     Active Substance: FOLIC ACID
  10. POTASSIUM CHLORIDE. [Concomitant]
     Active Substance: POTASSIUM CHLORIDE
     Dosage: 20 MEQ, 1X/DAY
     Route: 048
  11. CUTAQUIG [Concomitant]
     Active Substance: HUMAN IMMUNOGLOBULIN G
     Dosage: 20 G, 1X/DAY
  12. OMEPRAZOLE. [Concomitant]
     Active Substance: OMEPRAZOLE
     Dosage: 40 MG, 1X/DAY
     Route: 048
  13. HYDROCORTISONE. [Concomitant]
     Active Substance: HYDROCORTISONE
     Dosage: 20 MG, 2X/DAY
     Route: 048
  14. RUTAXIN (PRESUMED RITUXAN) [Concomitant]
     Dosage: 500 MG, 2X/YEAR (EVERY 6 MONTHS)
  15. FIRDAPSE [Suspect]
     Active Substance: AMIFAMPRIDINE PHOSPHATE
     Indication: MYASTHENIA GRAVIS
     Dosage: 65 MG, 1X/DAY
     Route: 048
     Dates: start: 201908
  16. FIRDAPSE [Suspect]
     Active Substance: AMIFAMPRIDINE PHOSPHATE
     Dosage: 10 MG, 4X/DAY
     Route: 048
  17. FIRDAPSE [Suspect]
     Active Substance: AMIFAMPRIDINE PHOSPHATE
     Dosage: 20 MG, 4X/DAY
     Route: 048
  18. TRAZODONE [Concomitant]
     Active Substance: TRAZODONE HYDROCHLORIDE
     Dosage: 100 MG, 1X/DAY AT BEDTIME
  19. TOPAMAX [Concomitant]
     Active Substance: TOPIRAMATE
     Dosage: 100 MG, 2X/DAY
  20. IMODIUM A?D [Concomitant]
     Active Substance: LOPERAMIDE HYDROCHLORIDE
     Dosage: 2 MG, AS NEEDED
  21. FIRDAPSE [Suspect]
     Active Substance: AMIFAMPRIDINE PHOSPHATE
     Dosage: 30 MG, 4X/DAY
     Route: 048
  22. FIRDAPSE [Suspect]
     Active Substance: AMIFAMPRIDINE PHOSPHATE
     Dosage: UNK
  23. CYMBALTA [Concomitant]
     Active Substance: DULOXETINE HYDROCHLORIDE
     Dosage: 60 MG, 1X/DAY
     Route: 048
  24. MESTINON [Concomitant]
     Active Substance: PYRIDOSTIGMINE BROMIDE
     Dosage: 120 MG, 1X/DAY
     Route: 048
  25. MESTINON [Concomitant]
     Active Substance: PYRIDOSTIGMINE BROMIDE
     Dosage: 120 MG, UP TO 4X/DAY AS NEEDED
     Route: 048
  26. TRAZODONE [Concomitant]
     Active Substance: TRAZODONE HYDROCHLORIDE
     Dosage: 100 MG, 2X/DAY
     Route: 048
  27. IGG [Concomitant]
     Active Substance: HUMAN IMMUNOGLOBULIN G
     Dosage: 150 MG/KG, 1X/WEEK
     Route: 058
  28. HYDROCORTISONE. [Concomitant]
     Active Substance: HYDROCORTISONE
     Dosage: 25 MG, 2X/DAY
  29. ELIQUIS [Concomitant]
     Active Substance: APIXABAN
     Dosage: 5 MG, 2X/DAY
  30. FIRDAPSE [Suspect]
     Active Substance: AMIFAMPRIDINE PHOSPHATE
     Indication: MYASTHENIC SYNDROME
     Dosage: 20 MG, 4X/DAY
     Route: 048
     Dates: start: 201908
  31. KLONOPIN [Concomitant]
     Active Substance: CLONAZEPAM
     Dosage: 1 TABLETS, 3X/DAY
     Route: 048
  32. ASPIRIN DELAYED RELEASE [Concomitant]
     Active Substance: ASPIRIN
     Dosage: 81 MG, 1X/DAY
  33. FIRDAPSE [Suspect]
     Active Substance: AMIFAMPRIDINE PHOSPHATE
     Dosage: 25 MG, 4X/DAY
     Route: 048
  34. FIRDAPSE [Suspect]
     Active Substance: AMIFAMPRIDINE PHOSPHATE
     Dosage: 10 MG, 4X/DAY
     Route: 048
     Dates: start: 2020
  35. CONCERTA [Concomitant]
     Active Substance: METHYLPHENIDATE HYDROCHLORIDE
     Dosage: 36 MG, 1X/DAY
     Route: 048
  36. TEGRETOL [Concomitant]
     Active Substance: CARBAMAZEPINE
     Dosage: 200 MG, 2X/DAY
     Route: 048
  37. MIDODRINE [Concomitant]
     Active Substance: MIDODRINE
     Dosage: 10 MG, 1X/DAY AT BEDTIME
     Route: 048
  38. FIRDAPSE [Suspect]
     Active Substance: AMIFAMPRIDINE PHOSPHATE
     Dosage: 10 MG, 4X/DAY
     Route: 048
     Dates: start: 2020, end: 202007
  39. FIRDAPSE [Suspect]
     Active Substance: AMIFAMPRIDINE PHOSPHATE
     Dosage: 10 MG, 4X/DAY
     Route: 048
     Dates: start: 202007
  40. CYMBALTA [Concomitant]
     Active Substance: DULOXETINE HYDROCHLORIDE
     Dosage: 90 MG, 1X/DAY
  41. MESTINON [Concomitant]
     Active Substance: PYRIDOSTIGMINE BROMIDE
     Dosage: 60 MG, 8X/DAY
  42. MESTINON [Concomitant]
     Active Substance: PYRIDOSTIGMINE BROMIDE
     Dosage: 180 MG, 2X/DAY
     Route: 048
  43. OXYCODONE [Concomitant]
     Active Substance: OXYCODONE
     Dosage: 10 MG, AS NEEDED
     Route: 048
  44. MIDODRINE [Concomitant]
     Active Substance: MIDODRINE
     Dosage: 10 MG, AS NEEDED

REACTIONS (41)
  - Hospitalisation [Recovered/Resolved]
  - Haemoglobin decreased [Recovered/Resolved]
  - Pain [Recovered/Resolved]
  - Hypoaesthesia [Recovering/Resolving]
  - Prescribed overdose [Recovered/Resolved]
  - Endotracheal intubation [Recovered/Resolved]
  - Myasthenia gravis crisis [Recovered/Resolved]
  - Bacteraemia [Recovered/Resolved]
  - Device dislocation [Recovered/Resolved]
  - Mechanical ventilation [Recovering/Resolving]
  - Myasthenia gravis [Recovered/Resolved]
  - Shunt infection [Recovered/Resolved]
  - Hyperhidrosis [Recovering/Resolving]
  - Hypoaesthesia oral [Recovering/Resolving]
  - Staphylococcal infection [Not Recovered/Not Resolved]
  - Catheter site infection [Recovered/Resolved]
  - Catheter site thrombosis [Unknown]
  - Proteus infection [Recovered/Resolved]
  - Device related infection [Recovering/Resolving]
  - Abscess [Unknown]
  - Peripheral coldness [Not Recovered/Not Resolved]
  - Skin lesion [Unknown]
  - Arteriovenous graft site infection [Recovered/Resolved]
  - Influenza [Recovered/Resolved]
  - Unevaluable event [Unknown]
  - Off label use [Not Recovered/Not Resolved]
  - Pneumonia [Recovered/Resolved]
  - Blood iron decreased [Unknown]
  - Clostridium difficile infection [Not Recovered/Not Resolved]
  - Somnolence [Not Recovered/Not Resolved]
  - Neuropathy peripheral [Not Recovered/Not Resolved]
  - Cough [Unknown]
  - Sepsis [Recovered/Resolved]
  - Klebsiella infection [Recovered/Resolved]
  - Bacteriuria [Recovered/Resolved]
  - Adrenal insufficiency [Unknown]
  - Pancytopenia [Unknown]
  - Respiratory failure [Recovering/Resolving]
  - Stress [Unknown]
  - Feeling cold [Recovering/Resolving]
  - Headache [Unknown]

NARRATIVE: CASE EVENT DATE: 2019
